FAERS Safety Report 6771704-0 (Version None)
Quarter: 2010Q2

REPORT INFORMATION
  Report Type: 
  Country: None (occurrence: None)
  Receive Date: 20100616
  Receipt Date: 20091120
  Transmission Date: 20101027
  Serious: No
  Sender: FDA-Public Use
  Company Number: US-ASTRAZENECA-2009SE27881

PATIENT
  Age: 69 Year
  Sex: Female
  Weight: 55.3 kg

DRUGS (4)
  1. ATACAND [Suspect]
     Route: 048
  2. ATACAND [Suspect]
     Route: 048
  3. THYROID TAB [Concomitant]
  4. SUPPLEMENTS [Concomitant]

REACTIONS (4)
  - BLOOD PRESSURE DECREASED [None]
  - LICHENIFICATION [None]
  - OESOPHAGEAL STENOSIS [None]
  - WEIGHT DECREASED [None]
